FAERS Safety Report 23207110 (Version 1)
Quarter: 2023Q4

REPORT INFORMATION
  Report Type: Spontaneous
  Country: CA (occurrence: CA)
  Receive Date: 20231120
  Receipt Date: 20231120
  Transmission Date: 20240110
  Serious: Yes (Other)
  Sender: FDA-Public Use
  Company Number: CA-ELI_LILLY_AND_COMPANY-CA202311008490

PATIENT
  Age: 33 Year
  Sex: Male

DRUGS (4)
  1. DULOXETINE HYDROCHLORIDE [Suspect]
     Active Substance: DULOXETINE HYDROCHLORIDE
     Indication: Product used for unknown indication
     Dosage: 60 MG, UNKNOWN
     Route: 065
  2. ABRILADA [Suspect]
     Active Substance: ADALIMUMAB-AFZB
     Indication: Crohn^s disease
     Dosage: 40 MG, OTHER (INDUCTION 160 MG WEEK 0, 80 MG WEEK 2 THEN MAINTENANCE 40 MG EVERY 2 WEEKS)
     Route: 058
     Dates: start: 20221107
  3. ABRILADA [Suspect]
     Active Substance: ADALIMUMAB-AFZB
     Dosage: 40 MG, OTHER (INDUCTION 160 MG WEEK 0, 80 MG WEEK 2 THEN MAINTENANCE 40 MG EVERY 2 WEEKS)
     Route: 058
     Dates: start: 20231016
  4. CHOLESTYRAMINE [Concomitant]
     Active Substance: CHOLESTYRAMINE
     Indication: Product used for unknown indication
     Dosage: UNK, UNKNOWN
     Route: 065

REACTIONS (5)
  - Crohn^s disease [Unknown]
  - Arthralgia [Unknown]
  - Haematochezia [Unknown]
  - Spondylitis [Unknown]
  - Decreased activity [Unknown]

NARRATIVE: CASE EVENT DATE: 20231029
